FAERS Safety Report 13461017 (Version 2)
Quarter: 2017Q2

REPORT INFORMATION
  Report Type: Spontaneous
  Country: CZ (occurrence: CZ)
  Receive Date: 20170420
  Receipt Date: 20170509
  Transmission Date: 20170830
  Serious: Yes (Hospitalization)
  Sender: FDA-Public Use
  Company Number: CZ-OREXIGEN THERAPEUTICS, INC.-1065558

PATIENT
  Sex: Female
  Weight: 74.97 kg

DRUGS (2)
  1. MYSIMBA [Suspect]
     Active Substance: BUPROPION HYDROCHLORIDE\NALTREXONE HYDROCHLORIDE
     Indication: OBESITY
     Route: 065
     Dates: start: 20170329, end: 20170404
  2. MYSIMBA [Suspect]
     Active Substance: BUPROPION HYDROCHLORIDE\NALTREXONE HYDROCHLORIDE
     Dates: start: 20170407

REACTIONS (2)
  - Panic disorder [Recovered/Resolved]
  - Chest pain [Recovered/Resolved]

NARRATIVE: CASE EVENT DATE: 20170405
